FAERS Safety Report 15555985 (Version 3)
Quarter: 2020Q4

REPORT INFORMATION
  Report Type: Report from Study
  Country: CN (occurrence: CN)
  Receive Date: 20181026
  Receipt Date: 20201027
  Transmission Date: 20210113
  Serious: Yes (Other)
  Sender: FDA-Public Use
  Company Number: CN-JNJFOC-20181030354

PATIENT
  Age: 36 Year
  Sex: Male
  Weight: 60 kg

DRUGS (3)
  1. SIRTURO [Suspect]
     Active Substance: BEDAQUILINE FUMARATE
     Route: 048
     Dates: start: 2018, end: 2018
  2. SIRTURO [Suspect]
     Active Substance: BEDAQUILINE FUMARATE
     Indication: TUBERCULOSIS
     Route: 048
     Dates: start: 20180917, end: 2018
  3. LINEZOLID. [Suspect]
     Active Substance: LINEZOLID
     Indication: TUBERCULOSIS
     Route: 065

REACTIONS (1)
  - Optic neuritis [Recovering/Resolving]

NARRATIVE: CASE EVENT DATE: 20180929
